FAERS Safety Report 5292954-9 (Version None)
Quarter: 2007Q2

REPORT INFORMATION
  Report Type: 
  Country: None (occurrence: None)
  Receive Date: 20070411
  Receipt Date: 20070402
  Transmission Date: 20071010
  Serious: Yes (Hospitalization)
  Sender: FDA-Public Use
  Company Number: US-JNJFOC-20070400091

PATIENT
  Sex: Male

DRUGS (8)
  1. TMC125 [Suspect]
     Indication: HIV INFECTION
     Route: 048
  2. PREZISTA [Suspect]
     Route: 048
  3. PREZISTA [Suspect]
     Indication: HIV INFECTION
     Route: 048
  4. RITONAVIR [Concomitant]
     Indication: HIV INFECTION
     Route: 048
  5. FUZEON [Concomitant]
     Indication: HIV INFECTION
     Route: 058
  6. TRUVADA [Concomitant]
     Indication: HIV INFECTION
     Route: 048
  7. ZIAGEN [Concomitant]
     Indication: HIV INFECTION
     Route: 048
  8. MK0518 [Concomitant]
     Indication: HIV INFECTION
     Route: 048

REACTIONS (1)
  - DEEP VEIN THROMBOSIS [None]
